FAERS Safety Report 4778956-7 (Version None)
Quarter: 2005Q3

REPORT INFORMATION
  Report Type: 
  Country: None (occurrence: None)
  Receive Date: 20050922
  Receipt Date: 20050912
  Transmission Date: 20060218
  Serious: Yes (Hospitalization)
  Sender: FDA-Public Use
  Company Number: 2005-131607-NL

PATIENT
  Age: 77 Year
  Sex: Male

DRUGS (11)
  1. MIRTAZAPINE [Suspect]
     Indication: ANXIETY
     Dosage: 45 MG/15 MG
     Route: 048
     Dates: start: 20050408, end: 20050808
  2. MIRTAZAPINE [Suspect]
     Indication: DEPRESSION
     Dosage: 45 MG/15 MG
     Route: 048
     Dates: start: 20050408, end: 20050808
  3. MIRTAZAPINE [Suspect]
     Indication: ANXIETY
     Dosage: 45 MG/15 MG
     Route: 048
     Dates: start: 20050808
  4. MIRTAZAPINE [Suspect]
     Indication: DEPRESSION
     Dosage: 45 MG/15 MG
     Route: 048
     Dates: start: 20050808
  5. PREDNISOLONE [Concomitant]
  6. TRIMETHOPRIM [Concomitant]
  7. ZOLPIDEM TARTRATE [Concomitant]
  8. LATULOSE [Concomitant]
  9. OXAZEPAM [Concomitant]
  10. PARACETAMOL [Concomitant]
  11. CITALOPRAM HYDROBROMIDE [Concomitant]

REACTIONS (2)
  - DYSPHAGIA [None]
  - WEIGHT DECREASED [None]
